FAERS Safety Report 13516745 (Version 1)
Quarter: 2017Q2

REPORT INFORMATION
  Report Type: Spontaneous
  Country: US (occurrence: US)
  Receive Date: 20170505
  Receipt Date: 20170505
  Transmission Date: 20170830
  Serious: Yes (Hospitalization, Other)
  Sender: FDA-Public Use
  Company Number: US-ALVOGEN-2017-ALVOGEN-092020

PATIENT
  Age: 49 Year
  Sex: Female

DRUGS (7)
  1. VANCOMYCIN [Suspect]
     Active Substance: VANCOMYCIN
     Indication: DEVICE RELATED INFECTION
     Dosage: ON HD 01:  1 G OF VANCOMYCIN (10 MG/KG) EVERY 8 H (Q8H)
  2. VANCOMYCIN [Suspect]
     Active Substance: VANCOMYCIN
     Indication: DEVICE RELATED INFECTION
     Dosage: ON HOSPITAL DAY 2, HER DOSE WAS EMPIRICALLY INCREASED TO 2 G (20 MG/KG) Q8H FOR 2 DOSES.
  3. VANCOMYCIN [Suspect]
     Active Substance: VANCOMYCIN
     Indication: STAPHYLOCOCCAL INFECTION
     Dosage: ON HD 2: DECREASED BACK TO 1 G Q8H
  4. VANCOMYCIN [Suspect]
     Active Substance: VANCOMYCIN
     Indication: DEVICE RELATED INFECTION
     Dosage: ON HD 2: DECREASED BACK TO 1 G Q8H
  5. LISINOPRIL. [Suspect]
     Active Substance: LISINOPRIL
     Indication: PRODUCT USED FOR UNKNOWN INDICATION
     Dosage: TWICE (ON DAY 01 AND DAY 03)
  6. VANCOMYCIN [Suspect]
     Active Substance: VANCOMYCIN
     Indication: STAPHYLOCOCCAL INFECTION
     Dosage: ON HD 01:  1 G OF VANCOMYCIN (10 MG/KG) EVERY 8 H (Q8H)
  7. VANCOMYCIN [Suspect]
     Active Substance: VANCOMYCIN
     Indication: STAPHYLOCOCCAL INFECTION
     Dosage: ON HOSPITAL DAY 2, HER DOSE WAS EMPIRICALLY INCREASED TO 2 G (20 MG/KG) Q8H FOR 2 DOSES.

REACTIONS (3)
  - Renal tubular necrosis [Recovered/Resolved]
  - Nephropathy toxic [Recovered/Resolved]
  - Acute kidney injury [Recovered/Resolved]
